FAERS Safety Report 8858684 (Version 1)
Quarter: 2012Q4

REPORT INFORMATION
  Report Type: 
  Country: ES (occurrence: ES)
  Receive Date: 20121024
  Receipt Date: 20121024
  Transmission Date: 20130627
  Serious: Yes (Other)
  Sender: FDA-Public Use
  Company Number: ES-VERTEX PHARMACEUTICAL INC.-2012-023408

PATIENT

DRUGS (1)
  1. INCIVO [Suspect]
     Indication: HEPATITIS C
     Dosage: Dosage Form: Tablet
     Route: 065

REACTIONS (4)
  - Neutropenia [Unknown]
  - Anaemia [Unknown]
  - Lymphopenia [Unknown]
  - Thrombocytopenia [Unknown]
